FAERS Safety Report 25668914 (Version 2)
Quarter: 2025Q4

REPORT INFORMATION
  Report Type: Spontaneous
  Country: EU (occurrence: EU)
  Receive Date: 20250812
  Receipt Date: 20251028
  Transmission Date: 20260118
  Serious: No
  Sender: MERCK SHARP & DOHME LLC
  Company Number: EU-009507513-2318052

PATIENT

DRUGS (2)
  1. TEMODAL [Suspect]
     Active Substance: TEMOZOLOMIDE
     Route: 048
  2. ACITRETIN [Concomitant]
     Active Substance: ACITRETIN

REACTIONS (1)
  - Wrong technique in product usage process [Unknown]
